FAERS Safety Report 4483902-X (Version None)
Quarter: 2004Q4

REPORT INFORMATION
  Report Type: 
  Country: None (occurrence: None)
  Receive Date: 20041025
  Receipt Date: 20040507
  Transmission Date: 20050328
  Serious: Yes (Death, Hospitalization, Disabling, Other)
  Sender: FDA-Public Use
  Company Number: PHBS2004JP06266

PATIENT
  Age: 72 Year
  Sex: Male
  Weight: 52 kg

DRUGS (12)
  1. NEORAL [Suspect]
     Indication: APLASTIC ANAEMIA
     Dosage: 300 MG/DAY
     Route: 048
     Dates: start: 20040201, end: 20040421
  2. ITRIZOLE [Concomitant]
     Indication: FUNGAL INFECTION
     Dosage: 200 MG/D
     Route: 048
     Dates: start: 20040402, end: 20040520
  3. AMLODIN [Concomitant]
     Dosage: 2.5 MG/DAY
     Route: 048
     Dates: start: 20030101, end: 20040223
  4. SELBEX [Concomitant]
     Route: 048
     Dates: start: 20030101, end: 20040527
  5. ADONA [Concomitant]
     Dosage: 60 MG/D
     Route: 048
     Dates: start: 20030101, end: 20040222
  6. AM [Concomitant]
     Route: 048
     Dates: start: 20030101, end: 20040222
  7. SOLU-MEDROL [Concomitant]
     Dosage: 120 - 80 - 40 MG/D
     Route: 042
     Dates: start: 20040223, end: 20040304
  8. GRAN [Concomitant]
     Dosage: 600 MG/D
     Route: 058
     Dates: start: 20040223, end: 20040404
  9. MEROPEN [Concomitant]
     Dosage: 1 G/D
     Route: 042
     Dates: start: 20040318, end: 20040401
  10. DIFLUCAN [Concomitant]
     Indication: FUNGAL INFECTION
     Dosage: 400 MG/D
     Route: 042
     Dates: start: 20040319, end: 20040401
  11. MAXIPIME [Concomitant]
     Dosage: 4 G/D
     Route: 042
     Dates: start: 20040427, end: 20040510
  12. CYCLOSPORINE [Suspect]
     Indication: APLASTIC ANAEMIA
     Route: 065
     Dates: start: 20030701

REACTIONS (19)
  - ABASIA [None]
  - ANXIETY [None]
  - CONSTIPATION [None]
  - DECUBITUS ULCER [None]
  - DEMYELINATING POLYNEUROPATHY [None]
  - DEPRESSION [None]
  - DISEASE PROGRESSION [None]
  - DIZZINESS [None]
  - DRUG INEFFECTIVE [None]
  - FOLLICULITIS [None]
  - FUNGAL INFECTION [None]
  - GAIT DISTURBANCE [None]
  - HYPOAESTHESIA [None]
  - MUSCULAR WEAKNESS [None]
  - NEUROPATHY PERIPHERAL [None]
  - PNEUMONIA [None]
  - POLYNEUROPATHY [None]
  - SPINAL OSTEOARTHRITIS [None]
  - SPONDYLOSIS [None]
